FAERS Safety Report 9820522 (Version 3)
Quarter: 2014Q1

REPORT INFORMATION
  Report Type: Spontaneous
  Country: CA (occurrence: CA)
  Receive Date: 20140116
  Receipt Date: 20140306
  Transmission Date: 20141002
  Serious: Yes (Life-Threatening, Other)
  Sender: FDA-Public Use
  Company Number: CA-PFIZER INC-2014010028

PATIENT
  Sex: Male

DRUGS (1)
  1. NITROSTAT [Suspect]
     Indication: CHEST PAIN
     Dosage: 2-3 TABLETS EVERY 5-7 MINUTES
     Route: 060

REACTIONS (2)
  - Cardiac arrest [Recovered/Resolved]
  - Presyncope [Recovered/Resolved]
